FAERS Safety Report 12105420 (Version 1)
Quarter: 2016Q1

REPORT INFORMATION
  Report Type: Spontaneous
  Country: JP (occurrence: JP)
  Receive Date: 20160223
  Receipt Date: 20160223
  Transmission Date: 20160526
  Serious: Yes (Hospitalization)
  Sender: FDA-Public Use
  Company Number: PHHY2015JP167703

PATIENT
  Age: 96 Year
  Sex: Male

DRUGS (5)
  1. RIVASTACH [Suspect]
     Active Substance: RIVASTIGMINE
     Dosage: 6.9 MG/24 HOURS, 13.5 MG RIVASTIGMINE BASE, PATCH 7.5 (CM2)
     Route: 062
     Dates: start: 2015, end: 2015
  2. RIVASTACH [Suspect]
     Active Substance: RIVASTIGMINE
     Dosage: 4.6 MG/24 HOURS, 9 MG RIVASTIGMINE BASE, PATCH 5 (CM2)
     Route: 062
     Dates: start: 2015, end: 2015
  3. RIVASTACH [Suspect]
     Active Substance: RIVASTIGMINE
     Dosage: 6.9 MG/24 HOURS, 13.5 MG RIVASTIGMINE BASE, PATCH 7.5 (CM2)
     Route: 062
     Dates: start: 2015
  4. RIVASTACH [Suspect]
     Active Substance: RIVASTIGMINE
     Indication: DEMENTIA ALZHEIMER^S TYPE
     Dosage: 1.9 MG/24 HOURS, 4.5 MG RIVASTIGMINE BASE, PATCH 2.5 (CM2)
     Route: 062
     Dates: start: 20150717
  5. RIVASTACH [Suspect]
     Active Substance: RIVASTIGMINE
     Dosage: 9.5 MG/24 HOURS, 18 MG RIVASTIGMINE BASE, PATCH 10 (CM2)
     Route: 062
     Dates: start: 2015, end: 2015

REACTIONS (3)
  - Application site pruritus [Unknown]
  - Muscular weakness [Unknown]
  - Subdural haematoma [Unknown]

NARRATIVE: CASE EVENT DATE: 2015
